FAERS Safety Report 11119705 (Version 1)
Quarter: 2015Q2

REPORT INFORMATION
  Report Type: Spontaneous
  Country: US (occurrence: None)
  Receive Date: 20150515
  Receipt Date: 20150515
  Transmission Date: 20150821
  Serious: Yes (Other)
  Sender: FDA-Public Use
  Company Number: None

PATIENT
  Age: 67 Year
  Sex: Female
  Weight: 72.58 kg

DRUGS (6)
  1. CENTRUM SILVER [Concomitant]
     Active Substance: VITAMINS
  2. VITAMIN D3 [Concomitant]
     Active Substance: CHOLECALCIFEROL
  3. COLACE [Concomitant]
     Active Substance: DOCUSATE SODIUM
  4. METAMUCIL [Concomitant]
     Active Substance: PLANTAGO SEED
  5. DULOXETINE 60MG AND 30MG CAPSULES ACTAVIS [Suspect]
     Active Substance: DULOXETINE
     Indication: MAJOR DEPRESSION
     Route: 048
     Dates: start: 20150301, end: 20150514
  6. LORAZEPAM. [Concomitant]
     Active Substance: LORAZEPAM

REACTIONS (4)
  - Product substitution issue [None]
  - Depression [None]
  - Anxiety [None]
  - Headache [None]

NARRATIVE: CASE EVENT DATE: 20150509
